FAERS Safety Report 17911774 (Version 33)
Quarter: 2025Q3

REPORT INFORMATION
  Report Type: Report from Study
  Country: US (occurrence: US)
  Receive Date: 20200618
  Receipt Date: 20250902
  Transmission Date: 20251021
  Serious: Yes (Other)
  Sender: TAKEDA
  Company Number: US-SHIRE-US202019883

PATIENT
  Age: 75 Year
  Sex: Male
  Weight: 100 kg

DRUGS (54)
  1. HUMAN IMMUNOGLOBULIN G [Suspect]
     Active Substance: HUMAN IMMUNOGLOBULIN G
     Indication: Immunodeficiency common variable
     Dosage: 50 GRAM, Q4WEEKS
  2. HUMAN IMMUNOGLOBULIN G [Suspect]
     Active Substance: HUMAN IMMUNOGLOBULIN G
     Dosage: 50 GRAM, Q4WEEKS
     Dates: start: 20130202
  3. HUMAN IMMUNOGLOBULIN G [Suspect]
     Active Substance: HUMAN IMMUNOGLOBULIN G
     Dosage: 50 GRAM, 1/WEEK
  4. EPINEPHRINE [Concomitant]
     Active Substance: EPINEPHRINE
  5. ACETAMINOPHEN [Concomitant]
     Active Substance: ACETAMINOPHEN
  6. CIALIS [Concomitant]
     Active Substance: TADALAFIL
  7. OMEPRAZOLE [Concomitant]
     Active Substance: OMEPRAZOLE
  8. CAFFEINE [Concomitant]
     Active Substance: CAFFEINE
  9. UNISOM SLEEPTABS [Concomitant]
     Active Substance: DOXYLAMINE SUCCINATE
  10. ELIQUIS [Concomitant]
     Active Substance: APIXABAN
  11. PEPCID [Concomitant]
     Active Substance: FAMOTIDINE
  12. SODIUM CHLORIDE [Concomitant]
     Active Substance: SODIUM CHLORIDE
  13. VITAMIN D3 [Concomitant]
     Active Substance: CHOLECALCIFEROL
  14. MAGNESIUM [Concomitant]
     Active Substance: MAGNESIUM
  15. PRASTERONE [Concomitant]
     Active Substance: PRASTERONE
  16. NORCO [Concomitant]
     Active Substance: ACETAMINOPHEN\HYDROCODONE BITARTRATE
  17. ZYRTEC [Concomitant]
     Active Substance: CETIRIZINE HYDROCHLORIDE
  18. LIDOCAINE\PRILOCAINE [Concomitant]
     Active Substance: LIDOCAINE\PRILOCAINE
  19. ZINC [Concomitant]
     Active Substance: ZINC
  20. METAXALONE [Concomitant]
     Active Substance: METAXALONE
  21. IRON [Concomitant]
     Active Substance: IRON
  22. WELLBUTRIN XL [Concomitant]
     Active Substance: BUPROPION HYDROCHLORIDE
  23. DIPHENHYDRAMINE [Concomitant]
     Active Substance: DIPHENHYDRAMINE
  24. IPRATROPIUM BROMIDE [Concomitant]
     Active Substance: IPRATROPIUM BROMIDE
  25. COUMADIN [Concomitant]
     Active Substance: WARFARIN SODIUM
  26. TRAZODONE HCL [Concomitant]
     Active Substance: TRAZODONE HYDROCHLORIDE
  27. DEXTROSE [Concomitant]
     Active Substance: DEXTROSE MONOHYDRATE
  28. FOLIC ACID [Concomitant]
     Active Substance: FOLIC ACID
  29. ANDROGEL [Concomitant]
     Active Substance: TESTOSTERONE
  30. METAMUCIL [Concomitant]
     Active Substance: PLANTAGO SEED
  31. PRILOSEC [Concomitant]
     Active Substance: OMEPRAZOLE MAGNESIUM
  32. TIZANIDINE [Concomitant]
     Active Substance: TIZANIDINE
  33. ROPINIROLE [Concomitant]
     Active Substance: ROPINIROLE
  34. NEFAZODONE [Concomitant]
     Active Substance: NEFAZODONE
  35. ALEVE [Concomitant]
     Active Substance: NAPROXEN SODIUM
  36. TOPROL XL [Concomitant]
     Active Substance: METOPROLOL SUCCINATE
  37. LOSARTAN [Concomitant]
     Active Substance: LOSARTAN
  38. BENTYL [Concomitant]
     Active Substance: DICYCLOMINE HYDROCHLORIDE
  39. Aspercreme [Concomitant]
  40. FLUBLOK QUADRIVALENT NOS [Concomitant]
     Active Substance: INFLUENZA VIRUS VACCINE
  41. AUGMENTIN [Concomitant]
     Active Substance: AMOXICILLIN\CLAVULANATE POTASSIUM
  42. PYRIDIUM [Concomitant]
     Active Substance: PHENAZOPYRIDINE
  43. TIZANIDINE HYDROCHLORIDE [Concomitant]
     Active Substance: TIZANIDINE HYDROCHLORIDE
  44. DOXYCYCLINE HYCLATE [Concomitant]
     Active Substance: DOXYCYCLINE HYCLATE
  45. CIPROFLOXACIN HYDROCHLORIDE [Concomitant]
     Active Substance: CIPROFLOXACIN HYDROCHLORIDE
  46. Sodium sulfacetamide + sulfur [Concomitant]
  47. DIPHENHYDRAMINE HYDROCHLORIDE [Concomitant]
     Active Substance: DIPHENHYDRAMINE HYDROCHLORIDE
  48. NYSTATIN [Concomitant]
     Active Substance: NYSTATIN
  49. B active [Concomitant]
  50. PREDNISOLONE ACETATE [Concomitant]
     Active Substance: PREDNISOLONE ACETATE
  51. Brimonidine tartrate;Timolol [Concomitant]
  52. AZELASTINE HYDROCHLORIDE [Concomitant]
     Active Substance: AZELASTINE HYDROCHLORIDE
  53. RYALTRIS [Concomitant]
     Active Substance: MOMETASONE FUROATE MONOHYDRATE\OLOPATADINE HYDROCHLORIDE
  54. MACROBID [Concomitant]
     Active Substance: NITROFURANTOIN\NITROFURANTOIN MONOHYDRATE

REACTIONS (21)
  - Prostate infection [Not Recovered/Not Resolved]
  - Road traffic accident [Unknown]
  - Thrombosis [Unknown]
  - Infusion related reaction [Unknown]
  - Hordeolum [Unknown]
  - Urinary tract infection [Unknown]
  - COVID-19 [Recovered/Resolved]
  - Musculoskeletal pain [Unknown]
  - Dysuria [Unknown]
  - Skin abrasion [Unknown]
  - Incorrect drug administration rate [Unknown]
  - Infection [Unknown]
  - Cystitis [Unknown]
  - Haematuria [Unknown]
  - Rhinorrhoea [Unknown]
  - Pain [Unknown]
  - Eye pain [Unknown]
  - Infusion site pruritus [Unknown]
  - Cough [Unknown]
  - Erythema [Unknown]
  - Headache [Unknown]

NARRATIVE: CASE EVENT DATE: 20230215
